FAERS Safety Report 13835412 (Version 1)
Quarter: 2017Q3

REPORT INFORMATION
  Report Type: Spontaneous
  Country: US (occurrence: US)
  Receive Date: 20170804
  Receipt Date: 20170804
  Transmission Date: 20171127
  Serious: Yes (Other)
  Sender: FDA-Public Use
  Company Number: US-ELI_LILLY_AND_COMPANY-US201707010711

PATIENT
  Age: 41 Year
  Sex: Male

DRUGS (2)
  1. HUMALOG KWIKPEN [Suspect]
     Active Substance: INSULIN LISPRO
     Indication: TYPE 1 DIABETES MELLITUS
     Dosage: UNK UNK, UNKNOWN
     Route: 065
  2. HUMALOG KWIKPEN [Suspect]
     Active Substance: INSULIN LISPRO
     Dosage: 6 U, UNKNOWN
     Route: 065
     Dates: start: 20170725

REACTIONS (3)
  - Hypoglycaemia [Unknown]
  - Hypoglycaemia [Unknown]
  - Unresponsive to stimuli [Unknown]

NARRATIVE: CASE EVENT DATE: 20170725
